FAERS Safety Report 9788883 (Version 1)
Quarter: 2013Q4

REPORT INFORMATION
  Report Type: Spontaneous
  Country: FR (occurrence: FR)
  Receive Date: 20131230
  Receipt Date: 20131230
  Transmission Date: 20140711
  Serious: Yes (Hospitalization)
  Sender: FDA-Public Use
  Company Number: FR-GLAXOSMITHKLINE-B0955136A

PATIENT
  Age: 65 Year
  Sex: Female
  Weight: 58 kg

DRUGS (8)
  1. ZOPHREN [Suspect]
     Indication: PREMEDICATION
     Dosage: 8MG THREE TIMES PER DAY
     Route: 042
     Dates: start: 20130418
  2. EMEND [Suspect]
     Indication: PROPHYLAXIS OF NAUSEA AND VOMITING
     Dosage: 125MG PER DAY
     Route: 048
     Dates: start: 20130418, end: 20130418
  3. EMEND [Suspect]
     Indication: PREMEDICATION
     Dosage: 80MG PER DAY
     Route: 048
     Dates: end: 20130420
  4. YONDELIS [Suspect]
     Indication: LIPOSARCOMA
     Dosage: 1MGM2 CYCLIC
     Route: 042
     Dates: start: 20130418
  5. DEXAMETHASONE [Suspect]
     Indication: PREMEDICATION
     Dosage: 20MG CYCLIC
     Route: 042
     Dates: start: 20130418
  6. MOPRAL [Concomitant]
     Dates: start: 20130215
  7. DUPHALAC [Concomitant]
     Dates: start: 20130215
  8. INNOHEP [Concomitant]
     Dates: start: 20130215

REACTIONS (8)
  - Abdominal pain [Recovered/Resolved]
  - Nausea [Unknown]
  - Vomiting [None]
  - Neutropenia [None]
  - Inflammation [None]
  - Blood pressure diastolic increased [None]
  - Bronchopneumonia [None]
  - Drug interaction [None]
